FAERS Safety Report 9027263 (Version 1)
Quarter: 2013Q1

REPORT INFORMATION
  Report Type: Spontaneous
  Country: US (occurrence: US)
  Receive Date: 20130123
  Receipt Date: 20130123
  Transmission Date: 20140127
  Serious: No
  Sender: FDA-Public Use
  Company Number: US-BAYER-2013-006678

PATIENT
  Sex: Male

DRUGS (3)
  1. ALEVE CAPLET/TABLET,MIDOL EXTENDED RELIEF CAPLET [Suspect]
  2. UNKNOWN [Concomitant]
  3. STEROID ANTIBACTERIALS [Concomitant]

REACTIONS (2)
  - Incorrect dose administered [None]
  - Presyncope [None]
